FAERS Safety Report 24911576 (Version 2)
Quarter: 2025Q2

REPORT INFORMATION
  Report Type: Spontaneous
  Country: GB (occurrence: GB)
  Receive Date: 20250131
  Receipt Date: 20250402
  Transmission Date: 20250716
  Serious: Yes (Other)
  Sender: GUERBET
  Company Number: None

PATIENT
  Sex: Female

DRUGS (1)
  1. DOTAREM [Suspect]
     Active Substance: GADOTERATE MEGLUMINE
     Indication: Product used for unknown indication
     Route: 065

REACTIONS (11)
  - Medication error [Unknown]
  - Arthralgia [Unknown]
  - Q fever [Recovered/Resolved]
  - Somnolence [Recovered/Resolved]
  - Muscle fatigue [Recovered/Resolved]
  - Pain in jaw [Recovered/Resolved]
  - Emotional distress [Recovered/Resolved]
  - Oropharyngeal pain [Unknown]
  - Gait disturbance [Unknown]
  - Pain [Unknown]
  - Pyrexia [Unknown]
